FAERS Safety Report 13384349 (Version 1)
Quarter: 2017Q1

REPORT INFORMATION
  Report Type: Spontaneous
  Country: US (occurrence: US)
  Receive Date: 20170329
  Receipt Date: 20170329
  Transmission Date: 20170429
  Serious: Yes (Other)
  Sender: FDA-Public Use
  Company Number: US-MYLANLABS-2017M1018164

PATIENT

DRUGS (2)
  1. CISPLATIN. [Suspect]
     Active Substance: CISPLATIN
     Indication: LYMPHOMA
  2. CISPLATIN. [Suspect]
     Active Substance: CISPLATIN
     Indication: THROAT CANCER
     Dosage: UNK

REACTIONS (4)
  - Salivary gland atrophy [Unknown]
  - Gastrointestinal tube insertion [Recovered/Resolved]
  - Aphonia [Unknown]
  - Nausea [Unknown]
